FAERS Safety Report 20586759 (Version 2)
Quarter: 2022Q2

REPORT INFORMATION
  Report Type: Spontaneous
  Country: ES (occurrence: ES)
  Receive Date: 20220313
  Receipt Date: 20220401
  Transmission Date: 20220720
  Serious: Yes (Other)
  Sender: FDA-Public Use
  Company Number: ES-NOVARTISPH-NVSC2022ES054403

PATIENT
  Age: 15 Year
  Sex: Female
  Weight: 48 kg

DRUGS (31)
  1. METHOTREXATE [Suspect]
     Active Substance: METHOTREXATE
     Indication: Diffuse large B-cell lymphoma stage III
     Dosage: 15 MG (IT CHEMOTHERAPY)
     Route: 065
  2. METHOTREXATE [Suspect]
     Active Substance: METHOTREXATE
     Dosage: 8 G/ M2/ DAY (FIRST R-COPADM) 4 HOUR INFUSION
     Route: 041
  3. METHOTREXATE [Suspect]
     Active Substance: METHOTREXATE
     Dosage: 15 MG (IT CHEMOTHERAPY) (FIRST R-COPADM)
     Route: 065
  4. METHOTREXATE [Suspect]
     Active Substance: METHOTREXATE
     Dosage: 8 G/ M2/ DAY (SECOND R-COPADM) 4 HOUR INFUSION
     Route: 041
  5. METHOTREXATE [Suspect]
     Active Substance: METHOTREXATE
     Dosage: 15 MG (IT CHEMOTHERAPY) (SECOND R-COPADM)
     Route: 065
  6. VINCRISTINE [Suspect]
     Active Substance: VINCRISTINE
     Indication: Diffuse large B-cell lymphoma stage III
     Dosage: 1 MG/M2, QD (COP)
     Route: 065
  7. VINCRISTINE [Suspect]
     Active Substance: VINCRISTINE
     Dosage: 2 MG/M2, QD (FIRST R-COPADM)
     Route: 065
  8. VINCRISTINE [Suspect]
     Active Substance: VINCRISTINE
     Dosage: 2 MG/M2, QD (SECOND R-COPADM)
     Route: 065
  9. CYCLOPHOSPHAMIDE [Concomitant]
     Active Substance: CYCLOPHOSPHAMIDE
     Indication: Diffuse large B-cell lymphoma stage III
     Dosage: 300 MG/M2, QD
     Route: 065
  10. CYCLOPHOSPHAMIDE [Concomitant]
     Active Substance: CYCLOPHOSPHAMIDE
     Dosage: 250 MG/M2, BID (FIRST R-COPADM) 5 DOSES
     Route: 065
  11. CYCLOPHOSPHAMIDE [Concomitant]
     Active Substance: CYCLOPHOSPHAMIDE
     Dosage: 250 MG/M2, BID (SECOND  R-COPADM) 5 DOSES
     Route: 065
  12. PREDNISONE [Concomitant]
     Active Substance: PREDNISONE
     Indication: Diffuse large B-cell lymphoma stage III
     Dosage: 60 MG/M2, QD (COP)
     Route: 065
  13. PREDNISONE [Concomitant]
     Active Substance: PREDNISONE
     Dosage: 60 MG/M2, QD (FIRST R-COPADM)
     Route: 065
  14. PREDNISONE [Concomitant]
     Active Substance: PREDNISONE
     Dosage: 60 MG/M2, QD (SECOND R-COPADM)
     Route: 065
  15. ADRIAMYCIN [Concomitant]
     Active Substance: DOXORUBICIN HYDROCHLORIDE
     Indication: Diffuse large B-cell lymphoma stage III
     Dosage: 60 MG/M2, QD (FIRST R-COPADM)
     Route: 065
  16. ADRIAMYCIN [Concomitant]
     Active Substance: DOXORUBICIN HYDROCHLORIDE
     Dosage: 60 MG/M2, QD (SECOND R-COPADM)
     Route: 065
  17. HYDROCORTISONE [Concomitant]
     Active Substance: HYDROCORTISONE
     Indication: Product used for unknown indication
     Dosage: 15 MG (IT CHEMOTHERAPY) (COP)
     Route: 065
  18. HYDROCORTISONE [Concomitant]
     Active Substance: HYDROCORTISONE
     Dosage: 15 MG (IT CHEMOTHERAPY) (FIRST R-COPADM)
     Route: 065
  19. HYDROCORTISONE [Concomitant]
     Active Substance: HYDROCORTISONE
     Dosage: 15 MG (IT CHEMOTHERAPY) (SECOND R-COPADM)
     Route: 065
  20. RITUXIMAB [Concomitant]
     Active Substance: RITUXIMAB
     Indication: Product used for unknown indication
     Dosage: 375 MG/M2, QD (FIRST  R-COPADM)
     Route: 065
  21. RITUXIMAB [Concomitant]
     Active Substance: RITUXIMAB
     Dosage: 375 MG/M2, QD (SECOND R-COPADM)
     Route: 065
  22. RITUXIMAB [Concomitant]
     Active Substance: RITUXIMAB
     Dosage: 375 MG/M2, QD (FIRST R-CYVE)
     Route: 065
  23. RITUXIMAB [Concomitant]
     Active Substance: RITUXIMAB
     Dosage: 375 MG/M2, QD (SECOND R-CYVE)
     Route: 065
  24. ETOPOSIDE [Concomitant]
     Active Substance: ETOPOSIDE
     Indication: Product used for unknown indication
     Dosage: 200 MG/M2, QD (FIRST R-CYVE)
     Route: 065
  25. ETOPOSIDE [Concomitant]
     Active Substance: ETOPOSIDE
     Dosage: 200 MG/M2, QD (SECOND R-CYVE)
     Route: 065
  26. CYTARABINE [Concomitant]
     Active Substance: CYTARABINE
     Indication: Product used for unknown indication
     Dosage: 30 MG (FIRST R-COPADM) (IT CHEMOTHERAPY)
     Route: 065
  27. CYTARABINE [Concomitant]
     Active Substance: CYTARABINE
     Dosage: 30 MG (SECOND R-COPADM) (IT CHEMOTHERAPY)
     Route: 065
  28. CYTARABINE [Concomitant]
     Active Substance: CYTARABINE
     Dosage: 50 MG/M2, Q12H (FIRST R-CYVE)
     Route: 065
  29. CYTARABINE [Concomitant]
     Active Substance: CYTARABINE
     Dosage: 3 G/M? /D X 4 DAYS (HIGH DOSE) (FIRST R-CYVE)
     Route: 065
  30. CYTARABINE [Concomitant]
     Active Substance: CYTARABINE
     Dosage: 50 MG/M2, Q12H (SECOND R-CYVE)
     Route: 065
  31. CYTARABINE [Concomitant]
     Active Substance: CYTARABINE
     Dosage: 3 G/M? /D X 4 DAYS (HIGH DOSE) (SECOND R-CYVE)
     Route: 065

REACTIONS (4)
  - Cerebrovascular accident [Unknown]
  - Acute kidney injury [Unknown]
  - Myelosuppression [Unknown]
  - Neurotoxicity [Unknown]
